FAERS Safety Report 9093146 (Version 1)
Quarter: 2013Q1

REPORT INFORMATION
  Report Type: Spontaneous
  Country: FR (occurrence: FR)
  Receive Date: 20130201
  Receipt Date: 20130201
  Transmission Date: 20140127
  Serious: Yes (Hospitalization, Other)
  Sender: FDA-Public Use
  Company Number: FR-PFIZER INC-2013037637

PATIENT
  Age: 65 Year
  Sex: Male

DRUGS (18)
  1. ZOLOFT [Suspect]
     Dosage: 50 MG, 1X/DAY
     Route: 048
     Dates: start: 201206, end: 20120918
  2. RISPERDAL [Suspect]
     Dosage: 10 MG, 1X/DAY
     Route: 048
     Dates: end: 20120912
  3. RISPERDAL [Suspect]
     Dosage: 2 MG, DAILY
     Route: 048
     Dates: start: 20120913, end: 20121002
  4. THERALENE [Suspect]
     Dosage: 20 MG, 1X/DAY
     Route: 048
     Dates: end: 20120918
  5. MIANSERIN HYDROCHLORIDE [Concomitant]
     Dosage: 60 MG, 1X/DAY
     Route: 048
  6. GARDENAL [Concomitant]
     Dosage: 200 MG, 1X/DAY
     Route: 048
     Dates: end: 20121002
  7. GARDENAL [Concomitant]
     Dosage: 100 MG, DAILY
     Route: 048
     Dates: start: 20121003
  8. LASILIX [Concomitant]
     Dosage: 80 MG, 1X/DAY
     Route: 048
     Dates: end: 20120914
  9. PERINDOPRIL [Concomitant]
     Dosage: 4 MG, 1X/DAY
     Route: 048
     Dates: end: 20120914
  10. PERINDOPRIL [Concomitant]
     Dosage: UNK
     Route: 048
     Dates: start: 20120915
  11. PREVISCAN [Concomitant]
     Dosage: 10 MG, 1X/DAY
     Route: 048
  12. PREVISCAN [Concomitant]
     Dosage: UNK
     Route: 048
  13. DIAMICRON [Concomitant]
     Dosage: 120 MG, 1X/DAY
     Route: 048
     Dates: end: 20120914
  14. METFORMIN [Concomitant]
     Dosage: 2.5 G, 1X/DAY
     Route: 048
     Dates: end: 20120918
  15. METFORMIN [Concomitant]
     Dosage: UNK
     Route: 048
     Dates: start: 20120919
  16. OGAST [Concomitant]
     Dosage: 30 MG, 1X/DAY
     Route: 048
  17. DIGOXINE NATIVELLE [Concomitant]
     Dosage: 0.25 MG, 1X/DAY
     Route: 048
  18. SIMVASTATIN [Concomitant]
     Dosage: 20 MG, 1X/DAY
     Route: 048

REACTIONS (16)
  - Extrapyramidal disorder [Recovered/Resolved]
  - Gait disturbance [Recovering/Resolving]
  - General physical health deterioration [Recovering/Resolving]
  - Weight decreased [Recovering/Resolving]
  - Asthenia [Recovering/Resolving]
  - Hypoglycaemia [Recovered/Resolved]
  - Hypotension [Recovered/Resolved]
  - Hypokalaemia [Recovered/Resolved]
  - Anaemia [Recovering/Resolving]
  - Malnutrition [Recovering/Resolving]
  - Depressed level of consciousness [Recovering/Resolving]
  - Disorientation [Recovering/Resolving]
  - Somnolence [Recovering/Resolving]
  - Skin turgor decreased [Recovering/Resolving]
  - Skin disorder [Recovering/Resolving]
  - Hyponatraemia [Recovered/Resolved]
